FAERS Safety Report 8620660-9 (Version None)
Quarter: 2012Q3

REPORT INFORMATION
  Report Type: 
  Country: None (occurrence: None)
  Receive Date: 20120824
  Receipt Date: 20120821
  Transmission Date: 20120928
  Serious: Yes (Other)
  Sender: FDA-Public Use
  Company Number: AU-ACTELION-A-CH2012-70379

PATIENT
  Age: 22 Year
  Sex: Male

DRUGS (3)
  1. TRACLEER [Suspect]
     Indication: PRODUCT USED FOR UNKNOWN INDICATION
     Dosage: UNK
     Route: 048
  2. FUROSEMIDE [Concomitant]
  3. WARFARIN SODIUM [Concomitant]

REACTIONS (1)
  - HAEMOLYTIC ANAEMIA [None]
